FAERS Safety Report 14828131 (Version 1)
Quarter: 2018Q2

REPORT INFORMATION
  Report Type: Spontaneous
  Country: US (occurrence: US)
  Receive Date: 20180430
  Receipt Date: 20180430
  Transmission Date: 20180711
  Serious: No
  Sender: FDA-Public Use
  Company Number: US-GLAXOSMITHKLINE-US2018068586

PATIENT
  Age: 70 Year
  Sex: Female

DRUGS (1)
  1. FLONASE [Suspect]
     Active Substance: FLUTICASONE PROPIONATE
     Indication: HYPERSENSITIVITY
     Dosage: UNK, SPRAYS WICE ON DEVIATED SIDE ONCE ON OTHER

REACTIONS (4)
  - Underdose [Unknown]
  - Rhinitis allergic [Unknown]
  - Condition aggravated [Unknown]
  - Drug ineffective [Unknown]
